FAERS Safety Report 9641809 (Version 1)
Quarter: 2013Q4

REPORT INFORMATION
  Report Type: Report from Study
  Country: US (occurrence: US)
  Receive Date: 20131023
  Receipt Date: 20131023
  Transmission Date: 20140711
  Serious: Yes (Other)
  Sender: FDA-Public Use
  Company Number: US-ROCHE-1292319

PATIENT
  Sex: Male

DRUGS (5)
  1. AVASTIN [Suspect]
     Indication: DIABETIC RETINAL OEDEMA
     Route: 065
     Dates: start: 20120611
  2. AVASTIN [Suspect]
     Route: 065
     Dates: start: 20130819
  3. GLYBURIDE [Concomitant]
  4. LOSARTAN [Concomitant]
     Route: 065
  5. SIMVASTATIN [Concomitant]

REACTIONS (2)
  - Diabetic retinal oedema [Unknown]
  - Maculopathy [Unknown]
